FAERS Safety Report 13993545 (Version 1)
Quarter: 2017Q3

REPORT INFORMATION
  Report Type: Report from Study
  Country: US (occurrence: US)
  Receive Date: 20170920
  Receipt Date: 20170920
  Transmission Date: 20171128
  Serious: Yes (Other)
  Sender: FDA-Public Use
  Company Number: PHEH2017US029715

PATIENT
  Sex: Female

DRUGS (1)
  1. SIGNIFOR LAR [Suspect]
     Active Substance: PASIREOTIDE
     Indication: PRODUCT USED FOR UNKNOWN INDICATION
     Route: 065

REACTIONS (7)
  - Stress [Unknown]
  - Visual impairment [Unknown]
  - Bruxism [Unknown]
  - Paraesthesia [Recovering/Resolving]
  - Muscle spasms [Unknown]
  - Seizure [Unknown]
  - Hypoaesthesia [Recovering/Resolving]
